FAERS Safety Report 6316092-9 (Version None)
Quarter: 2009Q3

REPORT INFORMATION
  Report Type: 
  Country: None (occurrence: None)
  Receive Date: 20090819
  Receipt Date: 20090819
  Transmission Date: 20100115
  Serious: Yes (Other)
  Sender: FDA-Public Use
  Company Number: None

PATIENT
  Age: 31 Year
  Sex: Male
  Weight: 68.0396 kg

DRUGS (1)
  1. BOTOX [Suspect]
     Indication: DYSTONIA
     Dates: start: 20090728, end: 20090817

REACTIONS (1)
  - INFLUENZA LIKE ILLNESS [None]
